APPROVED DRUG PRODUCT: FLUOTREX
Active Ingredient: FLUOCINOLONE ACETONIDE
Strength: 0.01%
Dosage Form/Route: CREAM;TOPICAL
Application: A088174 | Product #001
Applicant: SAVAGE LABORATORIES INC DIV ALTANA INC
Approved: May 6, 1983 | RLD: No | RS: No | Type: DISCN